FAERS Safety Report 22535596 (Version 4)
Quarter: 2024Q1

REPORT INFORMATION
  Report Type: Report from Study
  Country: KR (occurrence: KR)
  Receive Date: 20230608
  Receipt Date: 20240119
  Transmission Date: 20240409
  Serious: Yes (Other)
  Sender: FDA-Public Use
  Company Number: KR-002147023-NVSC2023KR114504

PATIENT
  Age: 68 Year
  Sex: Female

DRUGS (15)
  1. BEOVU [Suspect]
     Active Substance: BROLUCIZUMAB-DBLL
     Indication: Neovascular age-related macular degeneration
     Dosage: 6 MG, EVERY 8 WEEKS
     Route: 031
     Dates: start: 20230407, end: 20230407
  2. CHOLINE ALFOSCERATE [Concomitant]
     Active Substance: CHOLINE ALFOSCERATE
     Indication: Hypertension
     Dosage: UNK
     Route: 065
     Dates: start: 20230308
  3. AMLODIPINE BESYLATE [Concomitant]
     Active Substance: AMLODIPINE BESYLATE
     Indication: Hypertension
     Dosage: UNK
     Route: 065
     Dates: start: 20230308
  4. METFORMIN HYDROCHLORIDE [Concomitant]
     Active Substance: METFORMIN HYDROCHLORIDE
     Indication: Diabetes mellitus
     Dosage: UNK
     Route: 065
     Dates: start: 20230308
  5. SIMVASTATIN [Concomitant]
     Active Substance: SIMVASTATIN
     Indication: Dyslipidaemia
     Dosage: UNK
     Route: 065
     Dates: start: 20230308
  6. TORAMICIN [Concomitant]
     Indication: Evidence based treatment
     Dosage: 1 DRP, 1 (EYE DROP) (5 ML)
     Route: 047
     Dates: start: 20230327, end: 20230327
  7. TORAMICIN [Concomitant]
     Dosage: 1 DRP, 1 (EYE DROP) (5 ML)
     Route: 047
     Dates: start: 20230407, end: 20230407
  8. OFLOXACIN [Concomitant]
     Active Substance: OFLOXACIN
     Indication: Evidence based treatment
     Dosage: 1 DRP,1 (EYE DROP)
     Route: 047
     Dates: start: 20230327, end: 20230327
  9. OFLOXACIN [Concomitant]
     Active Substance: OFLOXACIN
     Dosage: 1 DRP,1 (EYE DROP)
     Route: 047
     Dates: start: 20230407, end: 20230407
  10. TROPHERINE [Concomitant]
     Indication: Evidence based treatment
     Dosage: 1 DRP, 1 (EYE DROP)
     Route: 047
     Dates: start: 20230327, end: 20230327
  11. TROPHERINE [Concomitant]
     Dosage: 1 DRP, 1 (EYE DROP)
     Route: 047
     Dates: start: 20230407, end: 20230407
  12. PARACAINE [Concomitant]
     Active Substance: PROPARACAINE HYDROCHLORIDE
     Indication: Evidence based treatment
     Dosage: 1 DRP, 1 (EYE DROP)
     Route: 047
     Dates: start: 20230327, end: 20230327
  13. PARACAINE [Concomitant]
     Active Substance: PROPARACAINE HYDROCHLORIDE
     Dosage: 1 DRP, 1 (EYE DROP)
     Route: 047
     Dates: start: 20230407, end: 20230407
  14. MOXISTA [Concomitant]
     Indication: Evidence based treatment
     Dosage: 1 DRP, 3, EYE DROP
     Route: 047
     Dates: start: 20230327, end: 20230330
  15. MOXISTA [Concomitant]
     Dosage: 1 DRP, 3, EYE DROP
     Route: 047
     Dates: start: 20230407, end: 20230410

REACTIONS (5)
  - Choroidal neovascularisation [Unknown]
  - Subretinal hyperreflective exudation [Unknown]
  - Keratic precipitates [Unknown]
  - Eye inflammation [Recovered/Resolved]
  - Vitreous floaters [Unknown]

NARRATIVE: CASE EVENT DATE: 20230417
